FAERS Safety Report 17674513 (Version 2)
Quarter: 2020Q2

REPORT INFORMATION
  Report Type: Spontaneous
  Country: RU (occurrence: RU)
  Receive Date: 20200416
  Receipt Date: 20200429
  Transmission Date: 20200714
  Serious: Yes (Hospitalization)
  Sender: FDA-Public Use
  Company Number: RU-TEVA-2020-RU-1224841

PATIENT
  Age: 48 Year
  Sex: Female
  Weight: 59 kg

DRUGS (5)
  1. AZITHROMYCIN ANHYDROUS. [Suspect]
     Active Substance: AZITHROMYCIN ANHYDROUS
     Indication: CARBUNCLE
     Dosage: SHE TOOK AT A DOSE OF 1G, 2 TIMES A DAY FOR 4.5 DAYS. THE TOTAL COURSE DOSE OF AZITHROMYCIN WAS 9G
     Route: 065
  2. CEFAZOLIN [Concomitant]
     Active Substance: CEFAZOLIN
     Indication: ANTIBIOTIC THERAPY
     Dosage: CEFAZOLIN 2G, 3 TIMES A DAY IV FOR 4 DAYS.
     Route: 042
  3. AMOXICILLIN/CLAVULANATE [Suspect]
     Active Substance: AMOXICILLIN\CLAVULANATE POTASSIUM
     Indication: ANTIBIOTIC THERAPY
     Dosage: AMOXICILLIN/CLAVULANATE ORALLY 875/125 MG 2 TIMES A DAY FOR 32 DAYS
     Route: 048
  4. RAIZODEG [Concomitant]
     Indication: TYPE 1 DIABETES MELLITUS
     Dosage: INSULIN DEGLUDEC/INSULIN ASPART (RAIZODEG) 30 UNITS TWICE A DAY
  5. NOVORAPID [Concomitant]
     Active Substance: INSULIN ASPART
     Indication: TYPE 1 DIABETES MELLITUS
     Dosage: INSULIN ASPART (NOVORAPID) 10 UNITS IN THE AFTERNOON.

REACTIONS (3)
  - Hepatotoxicity [Unknown]
  - Accidental overdose [Unknown]
  - Medication error [Unknown]
